FAERS Safety Report 4284768-3 (Version None)
Quarter: 2004Q1

REPORT INFORMATION
  Report Type: 
  Country: None (occurrence: None)
  Receive Date: 20040202
  Receipt Date: 20040121
  Transmission Date: 20041129
  Serious: Yes (Other)
  Sender: FDA-Public Use
  Company Number: NO-JNJFOC-20040104254

PATIENT
  Age: 60 Year
  Sex: Female

DRUGS (5)
  1. REMICADE [Suspect]
     Indication: RHEUMATOID ARTHRITIS
     Dosage: 190 MG, INTRAVENOUS
     Route: 042
     Dates: start: 20010101, end: 20031201
  2. ZYRTEC [Concomitant]
  3. CALCIGRAN TABLETS [Concomitant]
  4. ALPOXEN (NAPROXEN) [Concomitant]
  5. TENORMIN [Concomitant]

REACTIONS (5)
  - C-REACTIVE PROTEIN INCREASED [None]
  - INFUSION RELATED REACTION [None]
  - MUSCLE RIGIDITY [None]
  - PYREXIA [None]
  - RASH MACULO-PAPULAR [None]
